FAERS Safety Report 14253296 (Version 1)
Quarter: 2017Q4

REPORT INFORMATION
  Report Type: Report from Study
  Country: US (occurrence: US)
  Receive Date: 20171206
  Receipt Date: 20171206
  Transmission Date: 20180321
  Serious: Yes (Death, Hospitalization, Other)
  Sender: FDA-Public Use
  Company Number: PHEH2017US039172

PATIENT
  Sex: Female

DRUGS (1)
  1. TYKERB [Suspect]
     Active Substance: LAPATINIB DITOSYLATE
     Indication: BREAST CANCER
     Route: 065

REACTIONS (5)
  - Breast cancer [Fatal]
  - Sepsis [Unknown]
  - Malignant neoplasm progression [Fatal]
  - Cellulitis [Fatal]
  - Fungating wound [Unknown]
